FAERS Safety Report 8406554-2 (Version None)
Quarter: 2012Q2

REPORT INFORMATION
  Report Type: 
  Country: None (occurrence: None)
  Receive Date: 20120529
  Receipt Date: 20080220
  Transmission Date: 20120825
  Serious: Yes (Hospitalization, Other)
  Sender: FDA-Public Use
  Company Number: 000202

PATIENT
  Age: 59 Year
  Sex: Male
  Weight: 64 kg

DRUGS (11)
  1. SELECTOL (CELIPROLOL HYDROCHLORIDE) [Concomitant]
  2. BEZATOL SR (BEZAFIBRATE) [Concomitant]
  3. CATACLOT (OZAGREL SODIUM) [Concomitant]
  4. BASEN OD (VOGLIBOSE) [Concomitant]
  5. WARFARIN SODIUM [Concomitant]
  6. OLMESARTAN MEDOXOMIL [Concomitant]
  7. NATEGLINIDE [Concomitant]
  8. PLETAL [Suspect]
     Indication: THROMBOTIC CEREBRAL INFARCTION
     Dosage: 100 MG, BID, ORAL, 100 MG, BID, ORAL
     Route: 048
     Dates: start: 20060213
  9. PLETAL [Suspect]
     Indication: THROMBOTIC CEREBRAL INFARCTION
     Dosage: 100 MG, BID, ORAL, 100 MG, BID, ORAL
     Route: 048
     Dates: start: 20041223, end: 20060201
  10. CALBLOCK (AZELNIDIPINE) [Concomitant]
  11. AMARYL [Concomitant]

REACTIONS (6)
  - CAROTID ARTERY OCCLUSION [None]
  - WHITE BLOOD CELL COUNT DECREASED [None]
  - ASPARTATE AMINOTRANSFERASE INCREASED [None]
  - BLOOD ALKALINE PHOSPHATASE INCREASED [None]
  - HYPOKALAEMIA [None]
  - GAMMA-GLUTAMYLTRANSFERASE INCREASED [None]
